FAERS Safety Report 12174297 (Version 1)
Quarter: 2016Q1

REPORT INFORMATION
  Report Type: Not Available
  Country: US (occurrence: US)
  Receive Date: 20160313
  Receipt Date: 20160313
  Transmission Date: 20160526
  Serious: Yes (Other)
  Sender: FDA-Public Use
  Company Number: US-ANIPHARMA-2016-US-001179

PATIENT
  Age: 39 Year
  Sex: Male

DRUGS (1)
  1. PHENYTOIN SODIUM (NON-SPECIFIC) [Suspect]
     Active Substance: PHENYTOIN SODIUM
     Dosage: 400 MG DAILY

REACTIONS (1)
  - Vasculitis [Unknown]
